FAERS Safety Report 6473833-8 (Version None)
Quarter: 2009Q4

REPORT INFORMATION
  Report Type: 
  Country: None (occurrence: None)
  Receive Date: 20091204
  Receipt Date: 20091124
  Transmission Date: 20100525
  Serious: Yes (Hospitalization)
  Sender: FDA-Public Use
  Company Number: US-MYLANLABS-2009S1020435

PATIENT
  Age: 44 Year
  Sex: Female
  Weight: 79.38 kg

DRUGS (19)
  1. XYREM [Suspect]
     Indication: NARCOLEPSY
     Route: 048
     Dates: start: 20090501, end: 20090901
  2. XYREM [Suspect]
     Route: 048
     Dates: start: 20090901
  3. MAXZIDE [Suspect]
     Indication: FLUID RETENTION
     Route: 048
     Dates: end: 20091001
  4. MAXZIDE [Suspect]
     Indication: SWELLING
     Route: 048
     Dates: end: 20091001
  5. MAXZIDE [Suspect]
     Indication: RHEUMATOID ARTHRITIS
     Route: 048
     Dates: end: 20091001
  6. MAXZIDE [Suspect]
     Route: 048
     Dates: end: 20091001
  7. MAXZIDE [Suspect]
     Route: 048
     Dates: end: 20091001
  8. MAXZIDE [Suspect]
     Route: 048
     Dates: end: 20091001
  9. CALCIUM WITH VITAMIN D [Concomitant]
  10. DIAZEPAM [Concomitant]
  11. OXYCODONE HCL [Concomitant]
  12. FOLIC ACID [Concomitant]
  13. PREDNISONE [Concomitant]
  14. ETANERCEPT [Concomitant]
  15. IPRATROPIUM BROMIDE AND ALBUTEROL SULFATE INHALATION SOLUTION [Concomitant]
  16. METHADONE [Concomitant]
  17. LEVOTHYROXINE SODIUM [Concomitant]
  18. DICLOFENAC [Concomitant]
  19. POTASSIUM [Concomitant]
     Route: 048

REACTIONS (3)
  - BLOOD POTASSIUM DECREASED [None]
  - CARDIAC FLUTTER [None]
  - CONDITION AGGRAVATED [None]
